FAERS Safety Report 25860240 (Version 1)
Quarter: 2025Q3

REPORT INFORMATION
  Report Type: Spontaneous
  Country: US (occurrence: None)
  Receive Date: 20250928
  Receipt Date: 20250928
  Transmission Date: 20251021
  Serious: Yes (Disabling)
  Sender: FDA-CTU
  Company Number: None

PATIENT
  Age: 27 Year
  Sex: Female
  Weight: 85.5 kg

DRUGS (4)
  1. ESCITALOPRAM [Suspect]
     Active Substance: ESCITALOPRAM OXALATE
     Indication: Depression
  2. ESCITALOPRAM [Suspect]
     Active Substance: ESCITALOPRAM OXALATE
     Indication: Anxiety
  3. LEXAPRO [Concomitant]
     Active Substance: ESCITALOPRAM OXALATE
  4. METOPROLOL [Concomitant]
     Active Substance: METOPROLOL

REACTIONS (9)
  - Feeling abnormal [None]
  - Drug withdrawal syndrome [None]
  - Electric shock sensation [None]
  - Intrusive thoughts [None]
  - Arrhythmia [None]
  - Panic attack [None]
  - Insomnia [None]
  - Feeding disorder [None]
  - Drug dependence [None]

NARRATIVE: CASE EVENT DATE: 20241001
